FAERS Safety Report 10040078 (Version 1)
Quarter: 2014Q1

REPORT INFORMATION
  Report Type: Spontaneous
  Country: US (occurrence: US)
  Receive Date: 20140326
  Receipt Date: 20140326
  Transmission Date: 20141002
  Serious: Yes (Other)
  Sender: FDA-Public Use
  Company Number: US-JNJFOC-20140313081

PATIENT
  Age: 15 Year
  Sex: Female

DRUGS (4)
  1. INFLIXIMAB, RECOMBINANT [Suspect]
     Indication: CROHN^S DISEASE
     Dosage: 2 YEAR AFTER DIAGNOSIS OF CROHN^S DISEASE
     Route: 042
  2. INFLIXIMAB, RECOMBINANT [Suspect]
     Indication: CROHN^S DISEASE
     Dosage: BY 3 YEARS POST DIAGNOSIS OF CROHN^S DISEASE
     Route: 042
  3. INFLIXIMAB, RECOMBINANT [Suspect]
     Indication: CROHN^S DISEASE
     Dosage: 1 YEAR AFTER DIAGNOSIS OF CROHN^S DISEASE
     Route: 042
  4. PENTASA [Suspect]
     Indication: CROHN^S DISEASE
     Route: 065

REACTIONS (4)
  - Tubulointerstitial nephritis [Recovering/Resolving]
  - Mesangioproliferative glomerulonephritis [Recovering/Resolving]
  - Focal segmental glomerulosclerosis [Recovering/Resolving]
  - Crohn^s disease [Recovered/Resolved]
